FAERS Safety Report 20584954 (Version 2)
Quarter: 2022Q1

REPORT INFORMATION
  Report Type: Report from Study
  Country: US (occurrence: US)
  Receive Date: 20220311
  Receipt Date: 20220315
  Transmission Date: 20220423
  Serious: No
  Sender: FDA-Public Use
  Company Number: US-NOVARTISTESTPH-NVSC2022US057272

PATIENT
  Age: 61 Year
  Sex: Female

DRUGS (1)
  1. KESIMPTA [Suspect]
     Active Substance: OFATUMUMAB
     Indication: Multiple sclerosis
     Dosage: UNK
     Route: 058
     Dates: start: 20220217

REACTIONS (7)
  - Injection site pain [Recovered/Resolved]
  - Mood altered [Unknown]
  - Cerebral disorder [Unknown]
  - Poor quality sleep [Unknown]
  - Crying [Unknown]
  - Anger [Unknown]
  - Depressed mood [Unknown]

NARRATIVE: CASE EVENT DATE: 20220303
